FAERS Safety Report 5703474-9 (Version None)
Quarter: 2008Q2

REPORT INFORMATION
  Report Type: 
  Country: None (occurrence: None)
  Receive Date: 20080411
  Receipt Date: 20080331
  Transmission Date: 20081010
  Serious: Yes (Death)
  Sender: FDA-Public Use
  Company Number: DE-GENENTECH-257290

PATIENT
  Sex: Male
  Weight: 147.7 kg

DRUGS (1)
  1. BEVACIZUMAB [Suspect]
     Indication: NON-SMALL CELL LUNG CANCER
     Dosage: 1005 MG, Q3W
     Route: 042
     Dates: start: 20070920, end: 20080104

REACTIONS (1)
  - DISEASE PROGRESSION [None]
